FAERS Safety Report 4826169-2 (Version None)
Quarter: 2005Q4

REPORT INFORMATION
  Report Type: 
  Country: None (occurrence: None)
  Receive Date: 20051014
  Receipt Date: 20050818
  Transmission Date: 20060501
  Serious: No
  Sender: FDA-Public Use
  Company Number: 2005SP002403

PATIENT
  Age: 70 Year
  Sex: Female
  Weight: 76.2043 kg

DRUGS (7)
  1. LUNESTA [Suspect]
     Indication: SLEEP DISORDER
     Dosage: 2 MG;HS;ORAL
     Route: 048
     Dates: start: 20050801
  2. NEXIUM [Concomitant]
  3. EVISTA [Concomitant]
  4. MIACALCIN [Concomitant]
  5. ADVAIR DISKUS 100/50 [Concomitant]
  6. METOPROLOL [Concomitant]
  7. XANAX [Concomitant]

REACTIONS (4)
  - ASTHENIA [None]
  - IRRITABILITY [None]
  - NERVOUSNESS [None]
  - PAIN [None]
